FAERS Safety Report 9290300 (Version 1)
Quarter: 2013Q2

REPORT INFORMATION
  Report Type: Spontaneous
  Country: US (occurrence: US)
  Receive Date: 20130515
  Receipt Date: 20130515
  Transmission Date: 20140414
  Serious: Yes (Hospitalization)
  Sender: FDA-Public Use
  Company Number: US-OPTIMER PHARMACEUTICALS, INC.-20120059

PATIENT
  Sex: Female
  Weight: 58.5 kg

DRUGS (3)
  1. DIFICID [Suspect]
     Indication: CLOSTRIDIAL INFECTION
     Dosage: 200 MG, BID
     Route: 048
     Dates: start: 201202, end: 20120220
  2. DIFICID [Suspect]
     Dosage: 200 MG, BID FOR 6 WEEKS
     Route: 065
     Dates: start: 201204
  3. COUMADIN SODIUM [Concomitant]
     Indication: ATRIAL FIBRILLATION
     Dosage: 4.5 MG, QD
     Route: 048

REACTIONS (6)
  - Clostridium difficile infection [Unknown]
  - Disease recurrence [Unknown]
  - Diarrhoea [Unknown]
  - Faecal incontinence [Unknown]
  - Off label use [Unknown]
  - Medication error [Unknown]
